FAERS Safety Report 7920954-6 (Version None)
Quarter: 2011Q4

REPORT INFORMATION
  Report Type: 
  Country: None (occurrence: None)
  Receive Date: 20111117
  Receipt Date: 20111111
  Transmission Date: 20120403
  Serious: Yes (Death, Hospitalization)
  Sender: FDA-Public Use
  Company Number: US-ACTELION-A-NJ2011-55454

PATIENT

DRUGS (1)
  1. TRACLEER [Suspect]
     Indication: PULMONARY ARTERIAL HYPERTENSION
     Dosage: 62.5 MG, UNK
     Route: 048
     Dates: start: 20110701, end: 20110901

REACTIONS (5)
  - CARDIO-RESPIRATORY ARREST [None]
  - PULMONARY CONGESTION [None]
  - CARDIAC FAILURE CONGESTIVE [None]
  - ROAD TRAFFIC ACCIDENT [None]
  - OXYGEN SATURATION DECREASED [None]
